FAERS Safety Report 25061942 (Version 1)
Quarter: 2025Q1

REPORT INFORMATION
  Report Type: Spontaneous
  Country: US (occurrence: US)
  Receive Date: 20250311
  Receipt Date: 20250311
  Transmission Date: 20250409
  Serious: Yes (Hospitalization)
  Sender: BIOCODEX
  Company Number: US-BIOCODEX2-2025000220

PATIENT
  Sex: Male

DRUGS (7)
  1. DIACOMIT [Suspect]
     Active Substance: STIRIPENTOL
     Indication: Severe myoclonic epilepsy of infancy
     Dosage: 500MG BY MOUTH TWICE DAILY
     Route: 048
     Dates: start: 20250102
  2. CLOBAZAM [Concomitant]
     Active Substance: CLOBAZAM
     Indication: Severe myoclonic epilepsy of infancy
     Route: 065
  3. cetirizine (systemic) [Concomitant]
     Indication: Product used for unknown indication
     Route: 065
  4. CLONIDINE [Concomitant]
     Active Substance: CLONIDINE
     Indication: Product used for unknown indication
     Route: 065
  5. LAMICTAL [Concomitant]
     Active Substance: LAMOTRIGINE
     Indication: Product used for unknown indication
     Route: 065
  6. multivitamins/fluoride (with ADE) [Concomitant]
     Indication: Product used for unknown indication
     Route: 065
  7. vitamin D2 (SYN) [Concomitant]
     Indication: Product used for unknown indication
     Route: 065

REACTIONS (3)
  - Haematoma [Not Recovered/Not Resolved]
  - Swelling face [Not Recovered/Not Resolved]
  - Adverse drug reaction [Recovered/Resolved]
